FAERS Safety Report 6209571-6 (Version None)
Quarter: 2009Q2

REPORT INFORMATION
  Report Type: 
  Country: None (occurrence: None)
  Receive Date: 20090601
  Receipt Date: 20090525
  Transmission Date: 20091009
  Serious: Yes (Hospitalization)
  Sender: FDA-Public Use
  Company Number: JP-BRISTOL-MYERS SQUIBB COMPANY-14565105

PATIENT
  Age: 58 Year
  Sex: Female
  Weight: 71 kg

DRUGS (8)
  1. ERBITUX [Suspect]
     Indication: RECTAL CANCER
     Dosage: 1ST INF ON 29OCT08, 250MG/M2 TAKEN FROM 05NOV2008 RECENT INF ON 21JAN09
     Route: 042
     Dates: start: 20081029, end: 20081029
  2. IRINOTECAN HCL [Suspect]
     Indication: RECTAL CANCER
     Dosage: RECENT INF ON 21JAN09
     Route: 042
     Dates: start: 20081029, end: 20090121
  3. CHLOR-TRIMETON [Concomitant]
     Indication: PREMEDICATION
     Route: 042
     Dates: start: 20081029, end: 20090121
  4. DEXART [Concomitant]
     Indication: PREMEDICATION
     Route: 042
     Dates: start: 20081029, end: 20090121
  5. DEXART [Concomitant]
     Indication: ANTIEMETIC SUPPORTIVE CARE
     Route: 042
     Dates: start: 20081029, end: 20090121
  6. KYTRIL [Concomitant]
     Indication: PREMEDICATION
     Route: 042
     Dates: start: 20081029, end: 20090121
  7. HACHIAZULE [Concomitant]
     Indication: STOMATITIS
     Route: 048
     Dates: start: 20081105, end: 20081112
  8. CLEANAL [Concomitant]
     Indication: PRODUCTIVE COUGH
     Dosage: TOTAL DOSE 1200MG;FORMULATION TABLET
     Route: 048
     Dates: start: 20081029

REACTIONS (5)
  - CELLULITIS [None]
  - DEEP VEIN THROMBOSIS [None]
  - ERYTHEMA MULTIFORME [None]
  - PRURITUS [None]
  - RASH [None]
